FAERS Safety Report 22298056 (Version 2)
Quarter: 2023Q2

REPORT INFORMATION
  Report Type: Report from Study
  Country: US (occurrence: US)
  Receive Date: 20230509
  Receipt Date: 20230524
  Transmission Date: 20230721
  Serious: Yes (Hospitalization, Other)
  Sender: FDA-Public Use
  Company Number: US-UCBSA-2023023241

PATIENT
  Sex: Male

DRUGS (1)
  1. BRIVARACETAM [Suspect]
     Active Substance: BRIVARACETAM
     Indication: Seizure
     Dosage: 50 MILLIGRAM, 2X/DAY (BID)

REACTIONS (12)
  - Pneumonia [Recovered/Resolved]
  - Heart rate increased [Not Recovered/Not Resolved]
  - Oxygen consumption decreased [Recovering/Resolving]
  - Hospitalisation [Recovered/Resolved]
  - Dyspnoea [Recovering/Resolving]
  - Seasonal allergy [Recovering/Resolving]
  - Pyrexia [Recovered/Resolved]
  - Respiratory tract congestion [Unknown]
  - Cough [Unknown]
  - COVID-19 [Unknown]
  - Panic disorder [Unknown]
  - Anxiety disorder [Unknown]

NARRATIVE: CASE EVENT DATE: 20220101
